FAERS Safety Report 4304490-4 (Version None)
Quarter: 2004Q1

REPORT INFORMATION
  Report Type: 
  Country: None (occurrence: None)
  Receive Date: 20040224
  Receipt Date: 20040220
  Transmission Date: 20041129
  Serious: Yes (Hospitalization)
  Sender: FDA-Public Use
  Company Number: STA-AE-04-MTX-073

PATIENT
  Age: 61 Year
  Sex: Female

DRUGS (13)
  1. METHOTREXATE [Suspect]
     Indication: RHEUMATOID ARTHRITIS
     Dosage: 10 MG 1X PER 1 WK, ORAL
     Route: 048
  2. PREDNISONE [Suspect]
     Indication: RHEUMATOID ARTHRITIS
     Dosage: 7.5 MG 1X PER 1 DAY, ORAL
     Route: 048
  3. FOLIC ACID [Concomitant]
  4. OROCAL (CALCIUM CARBONATE) [Concomitant]
  5. OMEPRAZOLE [Concomitant]
  6. REMICADE [Suspect]
     Indication: RHEUMATOID ARTHRITIS
     Dosage: 300 MG 1X PER 1 MTH, INTRAVENOUS
     Route: 042
     Dates: start: 20020302
  7. SIMVASTATIN [Concomitant]
  8. CLONAZEPAM [Concomitant]
  9. HEXAQUINE (NIAOULI OIL/QUININE BENZOATE/THIAMINE HYDROCHLORIDE) [Concomitant]
  10. UTROGESTRAN (PROGESTERONE) [Concomitant]
  11. ENDOTELON (HERBAL EXTRACTS NOS/VITIS VINIFERA) [Concomitant]
  12. ESTRADIOL [Concomitant]
  13. NEURONTIN [Concomitant]

REACTIONS (4)
  - BRONCHIOLITIS [None]
  - ENTEROBACTER INFECTION [None]
  - HAEMOPHILUS INFECTION [None]
  - SINUSITIS [None]
